FAERS Safety Report 8519918-3 (Version None)
Quarter: 2012Q3

REPORT INFORMATION
  Report Type: 
  Country: None (occurrence: None)
  Receive Date: 20120719
  Receipt Date: 20120709
  Transmission Date: 20120928
  Serious: Yes (Other)
  Sender: FDA-Public Use
  Company Number: US-BIOGENIDEC-2012BI025637

PATIENT
  Sex: Female

DRUGS (8)
  1. DOXEPIN HCL [Concomitant]
     Route: 048
     Dates: start: 20091209
  2. SYNTHROID [Concomitant]
     Dates: start: 20090901
  3. CONCERTA [Concomitant]
     Dates: start: 20100310
  4. AVONEX [Suspect]
     Indication: MULTIPLE SCLEROSIS
     Route: 030
     Dates: start: 20090901
  5. PREDNISONE [Concomitant]
     Route: 048
     Dates: start: 20100310
  6. NUVIGIL [Concomitant]
     Route: 048
     Dates: start: 20100104
  7. VIMPAT [Concomitant]
     Route: 048
     Dates: start: 20090917
  8. LAMICTAL [Concomitant]
     Route: 048
     Dates: start: 20091209

REACTIONS (1)
  - CONVULSION [None]
